FAERS Safety Report 8551389-3 (Version None)
Quarter: 2012Q3

REPORT INFORMATION
  Report Type: 
  Country: None (occurrence: None)
  Receive Date: 20120730
  Receipt Date: 20120131
  Transmission Date: 20120928
  Serious: No
  Sender: FDA-Public Use
  Company Number: US-ALLERGAN-1200474US

PATIENT
  Age: 59 Year
  Sex: Female

DRUGS (1)
  1. LATISSE [Suspect]
     Indication: GROWTH OF EYELASHES
     Dosage: 2 GTT, QHS
     Route: 061
     Dates: start: 20110501, end: 20111201

REACTIONS (4)
  - EXPIRED DRUG ADMINISTERED [None]
  - EYELID MARGIN CRUSTING [None]
  - EYELID OEDEMA [None]
  - EYELIDS PRURITUS [None]
